FAERS Safety Report 4281678-2 (Version None)
Quarter: 2004Q1

REPORT INFORMATION
  Report Type: 
  Country: None (occurrence: None)
  Receive Date: 20040120
  Receipt Date: 20030626
  Transmission Date: 20041129
  Serious: Yes (Hospitalization)
  Sender: FDA-Public Use
  Company Number: BDI-005267

PATIENT
  Age: 67 Year
  Sex: Male

DRUGS (3)
  1. PROHANCE [Suspect]
     Indication: ABSCESS
     Dosage: 15 MGL ONCE IV
     Route: 042
     Dates: start: 20030625, end: 20030625
  2. PROHANCE [Suspect]
     Indication: NUCLEAR MAGNETIC RESONANCE IMAGING
     Dosage: 15 MGL ONCE IV
     Route: 042
     Dates: start: 20030625, end: 20030625
  3. TESTOSTERONE [Concomitant]

REACTIONS (9)
  - BLOOD PRESSURE DECREASED [None]
  - CONVULSION [None]
  - DRY MOUTH [None]
  - DYSPNOEA [None]
  - EYE PRURITUS [None]
  - EYE REDNESS [None]
  - EYE SWELLING [None]
  - LACRIMATION INCREASED [None]
  - SINUS BRADYCARDIA [None]
